FAERS Safety Report 13987369 (Version 3)
Quarter: 2018Q1

REPORT INFORMATION
  Report Type: Spontaneous
  Country: DE (occurrence: DE)
  Receive Date: 20170919
  Receipt Date: 20180207
  Transmission Date: 20180508
  Serious: Yes (Other)
  Sender: FDA-Public Use
  Company Number: DE-TEVA-805891GER

PATIENT
  Age: 63 Year
  Sex: Male
  Weight: 119 kg

DRUGS (9)
  1. AMIODARON [Concomitant]
     Active Substance: AMIODARONE
  2. TRANEXAMIC ACID. [Suspect]
     Active Substance: TRANEXAMIC ACID
     Route: 065
     Dates: start: 20170829, end: 20170829
  3. AMLODIPIN 5 [Concomitant]
     Dosage: 0-0-1
  4. CELIPROLOL 200 [Concomitant]
     Dosage: 0.5-0-0
  5. HEPARIN-NATRIUM-25 000-RATIOPHARM [Suspect]
     Active Substance: HEPARIN SODIUM
     Dosage: 55000 IU (INTERNATIONAL UNIT) DAILY;
     Route: 065
     Dates: start: 20170829, end: 20170829
  6. AMOXICILINA / CLAVULANICO [Concomitant]
     Indication: GINGIVITIS
  7. CANDESARTAN 16 [Concomitant]
     Dosage: 1-0-0
  8. ALLOPURINOL 300 [Concomitant]
     Active Substance: ALLOPURINOL
     Dosage: 0-0-1
  9. NORADRENALIN [Concomitant]
     Active Substance: NOREPINEPHRINE\NOREPINEPHRINE BITARTRATE

REACTIONS (2)
  - Transaminases increased [Unknown]
  - Acute kidney injury [Unknown]

NARRATIVE: CASE EVENT DATE: 20170829
